FAERS Safety Report 4474028-X (Version None)
Quarter: 2004Q4

REPORT INFORMATION
  Report Type: 
  Country: None (occurrence: None)
  Receive Date: 20041008
  Receipt Date: 20040928
  Transmission Date: 20050328
  Serious: Yes (Death, Disabling)
  Sender: FDA-Public Use
  Company Number: 2004-BP-08834RO

PATIENT
  Age: 80 Year
  Sex: Male

DRUGS (2)
  1. DEXAMETHASONE TABLETS USP, 4 MG (DEXAMETHASONE) [Suspect]
     Indication: MULTIPLE MYELOMA
     Dosage: 40 MG/DAY
     Dates: start: 20020422
  2. GENASENSE [Suspect]
     Indication: MULTIPLE MYELOMA
     Dosage: 7 MG/KG/DAY

REACTIONS (1)
  - DISEASE PROGRESSION [None]
